FAERS Safety Report 9423420 (Version 1)
Quarter: 2013Q3

REPORT INFORMATION
  Report Type: Spontaneous
  Country: US (occurrence: US)
  Receive Date: 20130726
  Receipt Date: 20130726
  Transmission Date: 20140515
  Serious: No
  Sender: FDA-Public Use
  Company Number: US-UPSHER-SMITH LABORATORIES, INC.-13001513

PATIENT
  Age: 17 Year
  Sex: Male

DRUGS (7)
  1. MIDODRINE HCL [Suspect]
     Indication: POSTURAL ORTHOSTATIC TACHYCARDIA SYNDROME
     Dosage: 5 MG, TID ON SATURDAY AND SUNDAY
     Route: 048
     Dates: start: 20130320, end: 20130426
  2. MIDODRINE HCL [Suspect]
     Dosage: 5 MG, BID ON MONDAY - FRIDAY
     Dates: start: 20130320, end: 20130426
  3. MIDODRINE HCL [Suspect]
     Dosage: 7 MG, TID
     Route: 048
     Dates: start: 20130427, end: 20130427
  4. MIDODRINE HCL [Suspect]
     Dosage: 10 MG, TID ON SATURDAY AND SUNDAY
     Dates: start: 20130428, end: 20130428
  5. MIDODRINE HCL [Suspect]
     Dosage: 10 MG, BID
     Route: 048
     Dates: start: 20130429, end: 20130430
  6. MIDODRINE (IMPAX) [Suspect]
     Indication: POSTURAL ORTHOSTATIC TACHYCARDIA SYNDROME
     Dosage: 5 MG, MONDAY - FRIDAY AT SCHOOL
     Route: 048
     Dates: start: 20130320, end: 20130426
  7. MIDODRINE (IMPAX) [Suspect]
     Dosage: 10 MG, MONDAY - FRIDAY AT SCHOOL
     Route: 048
     Dates: start: 20130429

REACTIONS (8)
  - Chest pain [Recovered/Resolved]
  - Asthenia [Recovered/Resolved]
  - Headache [Not Recovered/Not Resolved]
  - Dyspnoea [Recovered/Resolved]
  - Dizziness [Recovered/Resolved]
  - Hypotension [Recovered/Resolved]
  - Heart rate decreased [Recovered/Resolved]
  - Drug ineffective for unapproved indication [Recovered/Resolved]
